FAERS Safety Report 7919268-X (Version None)
Quarter: 2011Q4

REPORT INFORMATION
  Report Type: 
  Country: None (occurrence: None)
  Receive Date: 20111114
  Receipt Date: 20111102
  Transmission Date: 20120403
  Serious: Yes (Other)
  Sender: FDA-Public Use
  Company Number: ADR-2011-11471

PATIENT
  Age: 53 Year
  Sex: Male

DRUGS (3)
  1. BACLOFEN [Suspect]
     Indication: MUSCLE SPASTICITY
  2. BACLOFEN [Suspect]
     Indication: SPINAL CORD DISORDER
  3. BACLOFEN [Suspect]
     Indication: SPINAL CORD INJURY

REACTIONS (3)
  - ERYTHEMA [None]
  - PARAESTHESIA [None]
  - AMNESIA [None]
